FAERS Safety Report 16316912 (Version 4)
Quarter: 2020Q2

REPORT INFORMATION
  Report Type: Report from Study
  Country: CA (occurrence: CA)
  Receive Date: 20190515
  Receipt Date: 20200618
  Transmission Date: 20200713
  Serious: Yes (Other)
  Sender: FDA-Public Use
  Company Number: CA-AMGEN-CANCT2019076967

PATIENT
  Age: 41 Year
  Sex: Female

DRUGS (4)
  1. AIMOVIG [Suspect]
     Active Substance: ERENUMAB-AOOE
     Dosage: 70 MG, QMO
     Route: 058
     Dates: end: 20190515
  2. AIMOVIG [Suspect]
     Active Substance: ERENUMAB-AOOE
     Dosage: 70 MG, QMO
     Route: 058
     Dates: start: 20190328
  3. AMITRIPTYLINE [Concomitant]
     Active Substance: AMITRIPTYLINE
     Indication: PRODUCT USED FOR UNKNOWN INDICATION
     Dosage: UNK
     Route: 065
  4. AIMOVIG [Suspect]
     Active Substance: ERENUMAB-AOOE
     Indication: MIGRAINE
     Dosage: UNK
     Route: 065
     Dates: start: 20190315

REACTIONS (12)
  - Choking [Unknown]
  - Injection site pruritus [Recovering/Resolving]
  - Headache [Unknown]
  - Acne [Recovering/Resolving]
  - Dysphagia [Unknown]
  - Drug hypersensitivity [Unknown]
  - Urticaria [Unknown]
  - Injection site papule [Recovering/Resolving]
  - Drug ineffective [Unknown]
  - Rash [Unknown]
  - Injection site rash [Recovering/Resolving]
  - Migraine [Unknown]

NARRATIVE: CASE EVENT DATE: 201904
